FAERS Safety Report 20142887 (Version 2)
Quarter: 2021Q4

REPORT INFORMATION
  Report Type: Report from Study
  Country: LU (occurrence: LU)
  Receive Date: 20211202
  Receipt Date: 20211209
  Transmission Date: 20220303
  Serious: Yes (Hospitalization)
  Sender: FDA-Public Use
  Company Number: LU-ABBVIE-21K-098-4182479-00

PATIENT
  Sex: Male
  Weight: 63 kg

DRUGS (17)
  1. CARBIDOPA\LEVODOPA [Suspect]
     Active Substance: CARBIDOPA\LEVODOPA
     Indication: Parkinson^s disease
     Dosage: MD 5.0 ML; CD 1.5ML/H; ED 1.0 ML; DURING 16 HRS
     Route: 050
     Dates: start: 20200914, end: 20200923
  2. CARBIDOPA\LEVODOPA [Suspect]
     Active Substance: CARBIDOPA\LEVODOPA
     Dosage: MD 4.0 ML; CD 1.2ML/H; ED 1.0 ML; DURING 16 HRS
     Route: 050
     Dates: start: 20200923
  3. LERCANIDIPINE HYDROCHLORIDE [Concomitant]
     Active Substance: LERCANIDIPINE HYDROCHLORIDE
     Indication: Product used for unknown indication
     Dosage: 1 AT MORNING, 1 AT AFTERNOON
     Route: 048
  4. MOXONIDINE [Concomitant]
     Active Substance: MOXONIDINE
     Indication: Product used for unknown indication
     Dosage: 1 AT AFTERNOON
     Route: 048
  5. HEPA-MERZ [Concomitant]
     Indication: Product used for unknown indication
     Dosage: 1 AT MORNING, 1 AT NOON
     Route: 048
  6. PANTOMED [Concomitant]
     Indication: Product used for unknown indication
     Dosage: 1 AT MORNING
     Route: 048
  7. VIGANTOL [Concomitant]
     Indication: Product used for unknown indication
     Dosage: 1 AT MORNING
     Route: 048
  8. FOLIC ACID [Concomitant]
     Active Substance: FOLIC ACID
     Indication: Product used for unknown indication
     Dosage: 1 AT MORNING  (2/WEEK)
     Route: 048
  9. ZONEGRAN [Concomitant]
     Active Substance: ZONISAMIDE
     Indication: Product used for unknown indication
     Dosage: 1 AT19.00
     Route: 048
  10. BENSERAZIDE\LEVODOPA [Concomitant]
     Active Substance: BENSERAZIDE\LEVODOPA
     Indication: Product used for unknown indication
     Dosage: 1/2 AT 07.00, 1/4 AT 12.00, 16.00,19.00
     Route: 048
  11. BENSERAZIDE\LEVODOPA [Concomitant]
     Active Substance: BENSERAZIDE\LEVODOPA
     Dosage: 1 AT 22.00
  12. COMTAN [Concomitant]
     Active Substance: ENTACAPONE
     Indication: Product used for unknown indication
     Route: 048
  13. SEROQUEL [Concomitant]
     Active Substance: QUETIAPINE FUMARATE
     Indication: Product used for unknown indication
  14. FERROUS GLUCONATE [Concomitant]
     Active Substance: FERROUS GLUCONATE
     Indication: Product used for unknown indication
     Dosage: 1 AT NOON
     Route: 048
  15. SCOPOLAMINE [Concomitant]
     Active Substance: SCOPOLAMINE
     Indication: Product used for unknown indication
  16. NEUPRO [Concomitant]
     Active Substance: ROTIGOTINE
     Indication: Product used for unknown indication
     Dosage: 2MG FROM 30NOV2021 (4 MG AT HOME)
     Route: 062
  17. CRESTOR [Concomitant]
     Active Substance: ROSUVASTATIN CALCIUM
     Indication: Product used for unknown indication
     Dosage: 1 AT THE AFTERNOON
     Route: 048

REACTIONS (3)
  - Fall [Unknown]
  - Device breakage [Recovered/Resolved]
  - Device dislocation [Recovered/Resolved]
